FAERS Safety Report 12763212 (Version 1)
Quarter: 2016Q3

REPORT INFORMATION
  Report Type: Spontaneous
  Country: US (occurrence: US)
  Receive Date: 20160920
  Receipt Date: 20160920
  Transmission Date: 20161109
  Serious: Yes (Other)
  Sender: FDA-Public Use
  Company Number: US-ASTRAZENECA-2016SE97637

PATIENT
  Age: 19296 Day
  Sex: Male
  Weight: 125.2 kg

DRUGS (1)
  1. BYDUREON [Suspect]
     Active Substance: EXENATIDE
     Indication: DIABETES MELLITUS
     Route: 058
     Dates: start: 2015

REACTIONS (5)
  - Injection site haemorrhage [Unknown]
  - Fatigue [Unknown]
  - Circumstance or information capable of leading to medication error [Unknown]
  - Myocardial infarction [Unknown]
  - Amnesia [Unknown]

NARRATIVE: CASE EVENT DATE: 20160616
